FAERS Safety Report 20348076 (Version 2)
Quarter: 2022Q1

REPORT INFORMATION
  Report Type: Report from Study
  Country: KR (occurrence: None)
  Receive Date: 20220118
  Receipt Date: 20220201
  Transmission Date: 20220423
  Serious: Yes (Death)
  Sender: FDA-Public Use
  Company Number: KR-ROCHE-3003736

PATIENT
  Age: 71 Year
  Sex: Female
  Weight: 39.4 kg

DRUGS (14)
  1. PLACEBO [Suspect]
     Active Substance: UNSPECIFIED INGREDIENT
     Indication: Bile duct cancer
     Dosage: MOST RECENT DOSE OF STUDY DRUG PRIOR TO AE 30/JUN/2021
     Route: 042
     Dates: start: 20210630
  2. ATEZOLIZUMAB [Suspect]
     Active Substance: ATEZOLIZUMAB
     Indication: Bile duct cancer
     Dosage: DOSE LAST STUDY DRUG ADMIN PRIOR AE IS 1200 MG?MOST RECENT DOSE OF STUDY DRUG PRIOR TO AE 08/OCT/202
     Route: 041
     Dates: start: 20210630
  3. CISPLATIN [Suspect]
     Active Substance: CISPLATIN
     Indication: Bile duct cancer
     Dosage: MOST RECENT DOSE OF STUDY DRUG PRIOR TO AE 22-OCT-2021, 23.62 MG?TREATMENT WAS DISCONTINUED ON 22/OC
     Route: 042
     Dates: start: 20210630
  4. GEMCITABINE [Suspect]
     Active Substance: GEMCITABINE
     Indication: Bile duct cancer
     Dosage: MOST RECENT DOSE OF STUDY DRUG PRIOR TO AE 22-OCT-2021, 945 MG?TREATMENT WAS DISCONTINUED ON 22/OCT/
     Route: 042
     Dates: start: 20210630
  5. TRAMADOL [Concomitant]
     Active Substance: TRAMADOL
     Indication: Abdominal pain
     Dosage: 37.5MG/AAP 325MG
     Dates: start: 20201230
  6. URSODIOL [Concomitant]
     Active Substance: URSODIOL
     Indication: Prophylaxis
     Dosage: GIVEN FOR PROPHYLAXIS IS YES ;ONGOING: YES
     Dates: start: 20210120
  7. ZYPREXA [Concomitant]
     Active Substance: OLANZAPINE
     Indication: Prophylaxis
     Dosage: GIVEN FOR PROPHYLAXIS IS YES ;ONGOING: YES
     Dates: start: 20210630
  8. ERDOIN [Concomitant]
     Indication: Cough
     Dosage: YES
     Dates: start: 20210729
  9. CODEINE PHOSPHATE [Concomitant]
     Active Substance: CODEINE PHOSPHATE
     Indication: Cough
     Dosage: YES
     Dates: start: 20210729
  10. PHAZYME COMPLEX [Concomitant]
     Indication: Dyspepsia
     Dosage: YES
     Dates: start: 20210907
  11. HERBALS [Concomitant]
     Active Substance: HERBALS
     Indication: Dyspepsia
     Dosage: YES
     Dates: start: 20210907
  12. TACENOL ER [Concomitant]
     Indication: Prophylaxis
     Dosage: GIVEN FOR PROPHYLAXIS IS YES ;ONGOING: YES
     Dates: start: 20210907
  13. MAGNESIUM OXIDE [Concomitant]
     Active Substance: MAGNESIUM OXIDE
     Indication: Prophylaxis
     Dosage: GIVEN FOR PROPHYLAXIS IS YES ;ONGOING: YES
     Dates: start: 20211008
  14. LACTULOSE [Concomitant]
     Active Substance: LACTULOSE
     Indication: Prophylaxis
     Dates: start: 20211014

REACTIONS (1)
  - Death [Fatal]

NARRATIVE: CASE EVENT DATE: 20211225
